FAERS Safety Report 17728907 (Version 1)
Quarter: 2020Q2

REPORT INFORMATION
  Report Type: Spontaneous
  Country: JP (occurrence: JP)
  Receive Date: 20200430
  Receipt Date: 20200430
  Transmission Date: 20200714
  Serious: Yes (Life-Threatening, Hospitalization)
  Sender: FDA-Public Use
  Company Number: JP-TEVA-2020-JP-1227962

PATIENT
  Age: 39 Year
  Sex: Female

DRUGS (6)
  1. ALFACALCIDOL [Suspect]
     Active Substance: ALFACALCIDOL
     Dosage: .5 MICROGRAM DAILY;
     Route: 065
  2. ADRENALINE [Suspect]
     Active Substance: EPINEPHRINE
     Indication: ANAPHYLACTIC SHOCK
     Route: 065
  3. MAXACALCITOL [Suspect]
     Active Substance: MAXACALCITOL
     Indication: BLOOD CALCIUM INCREASED
     Dosage: 3 TIMES A WEEK
     Route: 042
  4. FAMOTIDINE. [Suspect]
     Active Substance: FAMOTIDINE
     Route: 065
  5. CALCIUM CARBONATE. [Suspect]
     Active Substance: CALCIUM CARBONATE
     Route: 065
  6. METOCLOPRAMIDE. [Suspect]
     Active Substance: METOCLOPRAMIDE
     Route: 065

REACTIONS (2)
  - Maternal exposure during pregnancy [Unknown]
  - Anaphylactic shock [Recovered/Resolved]
